FAERS Safety Report 9213956 (Version 1)
Quarter: 2013Q2

REPORT INFORMATION
  Report Type: Spontaneous
  Country: US (occurrence: None)
  Receive Date: 20130404
  Receipt Date: 20130404
  Transmission Date: 20140414
  Serious: Yes (Other)
  Sender: FDA-Public Use
  Company Number: None

PATIENT
  Age: 32 Year
  Sex: Female
  Weight: 87.54 kg

DRUGS (1)
  1. MIRENA 52 MG/1U BAYER [Suspect]
     Indication: CONTRACEPTION
     Dosage: INTRA-UTERINE
     Dates: start: 20121213, end: 20130328

REACTIONS (15)
  - Migraine [None]
  - Headache [None]
  - Pelvic pain [None]
  - Abdominal pain [None]
  - Depression [None]
  - Mood altered [None]
  - Breast tenderness [None]
  - Acne [None]
  - Panic attack [None]
  - Nausea [None]
  - Nervousness [None]
  - Back pain [None]
  - Weight increased [None]
  - Libido decreased [None]
  - Eczema [None]
